FAERS Safety Report 7605360-6 (Version None)
Quarter: 2011Q3

REPORT INFORMATION
  Report Type: 
  Country: None (occurrence: None)
  Receive Date: 20110713
  Receipt Date: 20110704
  Transmission Date: 20111222
  Serious: Yes (Hospitalization, Other)
  Sender: FDA-Public Use
  Company Number: DE-ASTELLAS-2011EU004179

PATIENT
  Age: 51 Year
  Sex: Male
  Weight: 110 kg

DRUGS (4)
  1. MICAFUNGIN INJECTION [Suspect]
     Indication: FUNGAL INFECTION
     Dosage: 100 MG, UNKNOWN/D
     Route: 042
     Dates: start: 20110601, end: 20110616
  2. CEFTAZIDIM [Concomitant]
     Indication: INFECTION
     Dosage: 2000 MG, BID
     Route: 042
     Dates: start: 20110603, end: 20110615
  3. LINEZOLID [Concomitant]
     Indication: INFECTION
     Dosage: 600 MG, BID
     Route: 042
     Dates: start: 20110609, end: 20110615
  4. CIPROFLOXACIN [Concomitant]
     Indication: INFECTION
     Dosage: 400 MG, BID
     Route: 042
     Dates: start: 20110603, end: 20110615

REACTIONS (3)
  - SYSTEMIC INFLAMMATORY RESPONSE SYNDROME [None]
  - BRONCHOPULMONARY ASPERGILLOSIS [None]
  - WOUND ABSCESS [None]
